FAERS Safety Report 11250401 (Version 1)
Quarter: 2015Q3

REPORT INFORMATION
  Report Type: Spontaneous
  Country: US (occurrence: US)
  Receive Date: 20150708
  Receipt Date: 20150708
  Transmission Date: 20151125
  Serious: No
  Sender: FDA-Public Use
  Company Number: US-ELI_LILLY_AND_COMPANY-US201007000244

PATIENT
  Sex: Female

DRUGS (2)
  1. GADOLINIUM [Concomitant]
     Active Substance: GADOLINIUM
  2. GLUCAGON. [Suspect]
     Active Substance: GLUCAGON
     Indication: DIAGNOSTIC PROCEDURE
     Dates: start: 20100622, end: 20100622

REACTIONS (5)
  - Rash [Not Recovered/Not Resolved]
  - Hypotension [Recovered/Resolved]
  - Dizziness [Recovered/Resolved]
  - Bradycardia [Recovered/Resolved]
  - Nausea [Not Recovered/Not Resolved]

NARRATIVE: CASE EVENT DATE: 20100622
